APPROVED DRUG PRODUCT: ERYTHROMYCIN
Active Ingredient: ERYTHROMYCIN
Strength: 2%
Dosage Form/Route: SOLUTION;TOPICAL
Application: A064039 | Product #001
Applicant: BAUSCH HEALTH US LLC
Approved: Jan 27, 1994 | RLD: No | RS: No | Type: DISCN